FAERS Safety Report 12011108 (Version 1)
Quarter: 2016Q1

REPORT INFORMATION
  Report Type: Report from Study
  Country: US (occurrence: US)
  Receive Date: 20160205
  Receipt Date: 20160205
  Transmission Date: 20160526
  Serious: No
  Sender: FDA-Public Use
  Company Number: US-ABBVIE-15K-163-1450379-00

PATIENT
  Age: 34 Year
  Sex: Male
  Weight: 104.42 kg

DRUGS (3)
  1. CLOBETASOL [Concomitant]
     Active Substance: CLOBETASOL
     Indication: PSORIASIS
  2. HUMIRA [Suspect]
     Active Substance: ADALIMUMAB
     Indication: PSORIATIC ARTHROPATHY
     Route: 065
     Dates: start: 2012, end: 2015
  3. HUMIRA [Suspect]
     Active Substance: ADALIMUMAB
     Route: 065
     Dates: start: 2015

REACTIONS (6)
  - Gastrooesophageal reflux disease [Unknown]
  - Arthralgia [Recovered/Resolved]
  - Hypersensitivity [Unknown]
  - Dyspnoea [Recovering/Resolving]
  - Nasopharyngitis [Unknown]
  - Productive cough [Recovering/Resolving]

NARRATIVE: CASE EVENT DATE: 201507
